FAERS Safety Report 4681091-X (Version None)
Quarter: 2005Q2

REPORT INFORMATION
  Report Type: 
  Country: None (occurrence: None)
  Receive Date: 20050603
  Receipt Date: 20050530
  Transmission Date: 20051028
  Serious: Yes (Hospitalization)
  Sender: FDA-Public Use
  Company Number: DE-GLAXOSMITHKLINE-D0046723A

PATIENT
  Sex: Male

DRUGS (2)
  1. QUILONUM RETARD [Suspect]
     Indication: AFFECTIVE DISORDER
     Dosage: 2TAB PER DAY
     Route: 048
     Dates: start: 19860101
  2. ASPIRIN [Suspect]
     Dosage: 100MG PER DAY
     Route: 065

REACTIONS (2)
  - DRUG INTERACTION [None]
  - DRUG LEVEL INCREASED [None]
